FAERS Safety Report 14422375 (Version 2)
Quarter: 2018Q1

REPORT INFORMATION
  Report Type: Spontaneous
  Country: JP (occurrence: JP)
  Receive Date: 20180123
  Receipt Date: 20180123
  Transmission Date: 20180509
  Serious: Yes (Other)
  Sender: FDA-Public Use
  Company Number: JP-009507513-1801JPN001803J

PATIENT
  Age: 61 Year
  Sex: Female

DRUGS (2)
  1. AVAPRO [Concomitant]
     Active Substance: IRBESARTAN
     Indication: HYPERTENSION
     Dosage: 25 MG, UNK
     Route: 048
  2. DESALEX TABLETS 5MG [Suspect]
     Active Substance: DESLORATADINE
     Indication: ECZEMA
     Dosage: 5 MG, UNK
     Route: 048
     Dates: start: 20180115, end: 20180115

REACTIONS (3)
  - Arrhythmia [Recovered/Resolved]
  - Blood pressure increased [Recovered/Resolved]
  - Heart rate increased [Recovered/Resolved]

NARRATIVE: CASE EVENT DATE: 20180115
